FAERS Safety Report 4610082-X (Version None)
Quarter: 2005Q1

REPORT INFORMATION
  Report Type: 
  Country: None (occurrence: None)
  Receive Date: 20050314
  Receipt Date: 20050301
  Transmission Date: 20050727
  Serious: No
  Sender: FDA-Public Use
  Company Number: HQWYE875007MAR05

PATIENT
  Age: 36 Year
  Sex: Female
  Weight: 42.1 kg

DRUGS (16)
  1. RAPAMUNE [Suspect]
     Indication: PANCREAS ISLET CELL TRANSPLANT
     Dosage: SEE IMAGE
  2. TACROLIMUS (TACROLIMUS) [Concomitant]
  3. MYCOPHENOLATE MOFETIL (MYCOPHENOLATE MOFETIL) [Concomitant]
  4. HEPARIN [Concomitant]
  5. ENOXAPARIN SODIUM (ENOXAPARIN FRACTION,  SODIUM SALT) [Concomitant]
  6. ANTITHYMOCYTE IMMUNOGLOBULIN (ANTITHYMOCYTE IMMUNOGLOBULIN) [Concomitant]
  7. ZENAPAX [Concomitant]
  8. ETANERCEPT (ETANERCEPT) [Concomitant]
  9. ACETAMINOPHEN [Concomitant]
  10. DIPHENHYDRAMINE (DIPHENHYDRAMINE) [Concomitant]
  11. PENTOXIFYLLINE [Concomitant]
  12. INSULIN [Concomitant]
  13. IMIPENEM (IMIPENEM) [Concomitant]
  14. VANCOMYCIN [Concomitant]
  15. TMP-SMX (SULFAMETHOXAZOLE/TRIMETHOPRIM) [Concomitant]
  16. VALGANCICLOVIR (VALGANCICLOVIR) [Concomitant]

REACTIONS (3)
  - DRUG LEVEL BELOW THERAPEUTIC [None]
  - GLYCOSYLATED HAEMOGLOBIN INCREASED [None]
  - TRANSPLANT FAILURE [None]
